FAERS Safety Report 4486713-4 (Version None)
Quarter: 2004Q4

REPORT INFORMATION
  Report Type: 
  Country: None (occurrence: None)
  Receive Date: 20041021
  Receipt Date: 20041012
  Transmission Date: 20050328
  Serious: Yes (Hospitalization)
  Sender: FDA-Public Use
  Company Number: 2004218464JP

PATIENT
  Age: 63 Year
  Sex: Female
  Weight: 43.1 kg

DRUGS (2)
  1. AZULFIDINE [Suspect]
     Indication: RHEUMATOID ARTHRITIS
     Dosage: 500 MG, BID, ORAL
     Route: 048
     Dates: start: 20000401, end: 20040427
  2. METHOTREXATE [Suspect]
     Indication: RHEUMATOID ARTHRITIS
     Dosage: 5 MG, WEEKLY, ORAL
     Route: 048
     Dates: start: 20000401, end: 20040427

REACTIONS (1)
  - INTERSTITIAL LUNG DISEASE [None]
